FAERS Safety Report 6126179-1 (Version None)
Quarter: 2009Q1

REPORT INFORMATION
  Report Type: 
  Country: None (occurrence: None)
  Receive Date: 20090320
  Receipt Date: 20090316
  Transmission Date: 20090719
  Serious: Yes (Other)
  Sender: FDA-Public Use
  Company Number: B0559809A

PATIENT
  Age: 13 Year
  Sex: Male
  Weight: 49 kg

DRUGS (7)
  1. RELENZA [Suspect]
     Indication: INFLUENZA
     Dosage: 10MG TWICE PER DAY
     Route: 055
     Dates: start: 20090206, end: 20090206
  2. CALONAL [Suspect]
     Route: 065
  3. MEDICON [Concomitant]
     Route: 048
     Dates: start: 20090205
  4. UNKNOWN MEDICATION [Concomitant]
     Route: 048
     Dates: start: 20090205
  5. CEFZON [Concomitant]
     Route: 048
     Dates: start: 20090205
  6. MOUTHWASH [Concomitant]
     Route: 002
     Dates: start: 20090205
  7. PA [Concomitant]
     Route: 048
     Dates: start: 20090205

REACTIONS (4)
  - ABNORMAL BEHAVIOUR [None]
  - BODY TEMPERATURE DECREASED [None]
  - COUGH [None]
  - HYPERHIDROSIS [None]
